FAERS Safety Report 8762917 (Version 3)
Quarter: 2012Q4

REPORT INFORMATION
  Report Type: Spontaneous
  Country: None (occurrence: None)
  Receive Date: 20120823
  Receipt Date: 20120905
  Transmission Date: 20130627
  Serious: Yes (Hospitalization, Other)
  Sender: FDA-Public Use
  Company Number: AUR-APL-2012-03544

PATIENT
  Age: 82 Year
  Sex: Female

DRUGS (10)
  1. METFORMIN (METFORMIN) [Suspect]
     Indication: DRUG USE FOR UNKNOWN INDICATION
     Route: 048
  2. BUMETANIDE [Suspect]
     Indication: DRUG USE FOR UNKNOWN INDICATION
     Dosage: (1 mg,2 in 1 d)
     Route: 048
  3. BUMETANIDE [Suspect]
     Indication: DRUG USE FOR UNKNOWN INDICATION
     Dosage: (1 mg, 2 in 1 D), oral
  4. HYDROCHLOROTHIAZIDE [Suspect]
     Indication: DRUG USE FOR UNKNOWN INDICATION
     Route: 048
     Dates: end: 20120723
  5. DIGIMERCK PICO (DIGITOXIN) [Concomitant]
  6. VENTOLINE (SALBUTAMOL) [Concomitant]
  7. SERETIDE (SERETIDE /01420901/) [Concomitant]
  8. SIMVASTATIN [Concomitant]
  9. MAREVAN (WARFARIN SODIUM) [Concomitant]
  10. SPIRIVA (TIOTROPIUM BROMIDE) [Concomitant]

REACTIONS (8)
  - Constipation [None]
  - Dehydration [None]
  - Hypokalaemia [None]
  - Acute prerenal failure [None]
  - International normalised ratio increased [None]
  - Fluid intake reduced [None]
  - Hypophagia [None]
  - Decreased activity [None]
